FAERS Safety Report 10365447 (Version 1)
Quarter: 2014Q3

REPORT INFORMATION
  Report Type: Spontaneous
  Country: JP (occurrence: JP)
  Receive Date: 20140806
  Receipt Date: 20140806
  Transmission Date: 20150326
  Serious: Yes (Other)
  Sender: FDA-Public Use
  Company Number: PHHY2013JP159573

PATIENT
  Age: 70 Year
  Sex: Female

DRUGS (3)
  1. EXJADE [Suspect]
     Active Substance: DEFERASIROX
     Dosage: 5 MG/KG, 250MG
     Dates: start: 201107
  2. EXJADE [Suspect]
     Active Substance: DEFERASIROX
     Dosage: 625 MG
     Dates: start: 201108
  3. EXJADE [Suspect]
     Active Substance: DEFERASIROX
     Dosage: 875 MG
     Dates: start: 201110

REACTIONS (1)
  - Pancytopenia [Unknown]
